FAERS Safety Report 24382029 (Version 1)
Quarter: 2024Q4

REPORT INFORMATION
  Report Type: Spontaneous
  Country: AU (occurrence: AU)
  Receive Date: 20241001
  Receipt Date: 20241001
  Transmission Date: 20250114
  Serious: Yes (Other)
  Sender: TEVA
  Company Number: AU-TEVA-VS-3247534

PATIENT
  Age: 25 Year
  Sex: Female

DRUGS (2)
  1. COPAXONE [Suspect]
     Active Substance: GLATIRAMER ACETATE
     Indication: Product used for unknown indication
     Route: 065
  2. GILENYA [Suspect]
     Active Substance: FINGOLIMOD HYDROCHLORIDE
     Indication: Product used for unknown indication
     Route: 065

REACTIONS (9)
  - Breast cancer [Unknown]
  - Malignant melanoma [Unknown]
  - Optic neuritis [Unknown]
  - Neoplasm malignant [Unknown]
  - Dysarthria [Unknown]
  - Duchenne muscular dystrophy [Unknown]
  - Ataxia [Unknown]
  - Smear cervix abnormal [Unknown]
  - Skin lesion [Unknown]
